FAERS Safety Report 5505940-8 (Version None)
Quarter: 2007Q4

REPORT INFORMATION
  Report Type: 
  Country: None (occurrence: None)
  Receive Date: 20071105
  Receipt Date: 20071030
  Transmission Date: 20080405
  Serious: Yes (Death, Other)
  Sender: FDA-Public Use
  Company Number: PHHO2007BR18118

PATIENT
  Age: 42 Year
  Sex: Male

DRUGS (2)
  1. GALVUS MET [Suspect]
     Dosage: 100 MG + 850 MG
  2. DIOVAN [Suspect]
     Dosage: 80 MG

REACTIONS (1)
  - MYOCARDIAL INFARCTION [None]
